FAERS Safety Report 8611315-5 (Version None)
Quarter: 2012Q3

REPORT INFORMATION
  Report Type: 
  Country: None (occurrence: None)
  Receive Date: 20120822
  Receipt Date: 20120814
  Transmission Date: 20120928
  Serious: Yes (Hospitalization)
  Sender: FDA-Public Use
  Company Number: US-PFIZER INC-2012199871

PATIENT
  Age: 53 Year
  Sex: Female

DRUGS (4)
  1. HUMIRA [Suspect]
     Indication: CROHN'S DISEASE
     Dosage: 40 MG/0.8 ML
     Dates: start: 20100101
  2. FLAGYL [Suspect]
     Indication: POUCHITIS
     Dosage: UNK
     Dates: start: 20120501, end: 20120501
  3. ESOMEPRAZOLE [Concomitant]
  4. VINCODIN [Concomitant]

REACTIONS (5)
  - GASTRIC DISORDER [None]
  - MUSCLE SPASMS [None]
  - DIARRHOEA [None]
  - ABDOMINAL PAIN [None]
  - POUCHITIS [None]
